FAERS Safety Report 23906038 (Version 1)
Quarter: 2024Q2

REPORT INFORMATION
  Report Type: Spontaneous
  Country: FR (occurrence: None)
  Receive Date: 20240527
  Receipt Date: 20240527
  Transmission Date: 20240717
  Serious: Yes (Death, Other)
  Sender: FDA-Public Use
  Company Number: 2024A122423

PATIENT
  Age: 64 Year
  Sex: Male

DRUGS (1)
  1. DURVALUMAB [Suspect]
     Active Substance: DURVALUMAB

REACTIONS (11)
  - Muscular weakness [Fatal]
  - Haematotoxicity [Fatal]
  - Myocarditis [Unknown]
  - Acute pulmonary oedema [Unknown]
  - Rhabdomyolysis [Unknown]
  - Polymyositis [Unknown]
  - Graves^ disease [Unknown]
  - Colitis [Unknown]
  - Fatigue [Unknown]
  - Head deformity [Unknown]
  - Dysphagia [Unknown]
